FAERS Safety Report 20057117 (Version 3)
Quarter: 2022Q1

REPORT INFORMATION
  Report Type: Spontaneous
  Country: US (occurrence: US)
  Receive Date: 20211111
  Receipt Date: 20220215
  Transmission Date: 20220423
  Serious: Yes (Hospitalization, Other)
  Sender: FDA-Public Use
  Company Number: US-Accord-244639

PATIENT
  Age: 71 Year
  Sex: Female

DRUGS (3)
  1. HYDROXYCHLOROQUINE [Suspect]
     Active Substance: HYDROXYCHLOROQUINE
     Indication: Rheumatoid arthritis
     Dosage: PO DAILY
     Route: 048
  2. PREDNISOLONE [Suspect]
     Active Substance: PREDNISOLONE
     Indication: Rheumatoid arthritis
     Dosage: PO DAILY.
     Route: 048
  3. LIDOCAINE [Suspect]
     Active Substance: LIDOCAINE
     Indication: Spinal anaesthesia
     Dosage: STRENGTH: 1 %, 1.5 ML L2-L4 MEDIAL BRANCH BLOCKS (VERTEBRAL LEVEL L3-L5)
     Route: 008

REACTIONS (2)
  - Extradural abscess [Recovered/Resolved]
  - Spinal stenosis [Recovered/Resolved]
